FAERS Safety Report 8965342 (Version 1)
Quarter: 2012Q4

REPORT INFORMATION
  Report Type: 
  Country: US (occurrence: US)
  Receive Date: 20121213
  Receipt Date: 20121213
  Transmission Date: 20130627
  Serious: Yes (Other)
  Sender: FDA-Public Use
  Company Number: PHEH2012US024450

PATIENT
  Age: 39 Year
  Sex: Female
  Weight: 29.93 kg

DRUGS (2)
  1. GILENYA [Suspect]
     Dosage: 0.5 mg, QD
     Route: 048
  2. CORTICOSTEROID DERIVATIVES [Concomitant]
     Dosage: UNK UKN, UNK

REACTIONS (4)
  - Vomiting [Unknown]
  - Rhinorrhoea [Unknown]
  - Lacrimation increased [Unknown]
  - Oropharyngeal pain [Unknown]
